FAERS Safety Report 24430712 (Version 3)
Quarter: 2024Q4

REPORT INFORMATION
  Report Type: Spontaneous
  Country: CN (occurrence: CN)
  Receive Date: 20241013
  Receipt Date: 20241018
  Transmission Date: 20250115
  Serious: Yes (Other)
  Sender: PFIZER
  Company Number: CN-PFIZER INC-PV202400131304

PATIENT
  Age: 74 Year
  Sex: Female
  Weight: 49 kg

DRUGS (2)
  1. ZYVOX [Suspect]
     Active Substance: LINEZOLID
     Indication: Enterococcal infection
     Dosage: 600 MG, 1X/DAY
     Route: 041
     Dates: start: 20240803, end: 20240814
  2. TYGACIL [Suspect]
     Active Substance: TIGECYCLINE
     Indication: Enterococcal infection
     Dosage: 100 MG, 2X/DAY
     Route: 041
     Dates: start: 20240803, end: 20240814

REACTIONS (2)
  - Full blood count decreased [Not Recovered/Not Resolved]
  - Off label use [Unknown]

NARRATIVE: CASE EVENT DATE: 20240803
